FAERS Safety Report 6107678-5 (Version None)
Quarter: 2009Q1

REPORT INFORMATION
  Report Type: 
  Country: None (occurrence: None)
  Receive Date: 20090302
  Receipt Date: 20080612
  Transmission Date: 20090719
  Serious: Yes (Disabling, Other)
  Sender: FDA-Public Use
  Company Number: ALA_00084_2008

PATIENT
  Sex: Female

DRUGS (1)
  1. REGLAN [Suspect]
     Indication: GASTROOESOPHAGEAL REFLUX DISEASE
     Dosage: 20 MG, 20 MG/DAY
     Dates: start: 20010401

REACTIONS (2)
  - PARKINSONISM [None]
  - TARDIVE DYSKINESIA [None]
